FAERS Safety Report 6176613-6 (Version None)
Quarter: 2009Q2

REPORT INFORMATION
  Report Type: 
  Country: None (occurrence: None)
  Receive Date: 20090501
  Receipt Date: 20090429
  Transmission Date: 20091009
  Serious: Yes (Other)
  Sender: FDA-Public Use
  Company Number: CA-ALLERGAN-0905903US

PATIENT
  Sex: Female

DRUGS (4)
  1. BOTOX [Suspect]
     Indication: SKIN WRINKLING
     Dosage: 14 UNITS, SINGLE
     Route: 030
     Dates: start: 20090327, end: 20090327
  2. JUVEDERM ULTRA LIDO [Suspect]
     Indication: DRUG USE FOR UNKNOWN INDICATION
  3. JUVEDERM ULTRA PLUS LIDO [Suspect]
     Indication: DRUG USE FOR UNKNOWN INDICATION
  4. JUVEDERM ULTRA PLUS [Suspect]
     Indication: DRUG USE FOR UNKNOWN INDICATION

REACTIONS (6)
  - BLINDNESS [None]
  - HAEMATOMA [None]
  - OPTIC NERVE DISORDER [None]
  - PAPILLOEDEMA [None]
  - SWELLING FACE [None]
  - TOOTHACHE [None]
